FAERS Safety Report 13134632 (Version 1)
Quarter: 2017Q1

REPORT INFORMATION
  Report Type: Spontaneous
  Country: US (occurrence: US)
  Receive Date: 20170120
  Receipt Date: 20170120
  Transmission Date: 20170428
  Serious: Yes (Hospitalization)
  Sender: FDA-Public Use
  Company Number: US-IPCA LABORATORIES LIMITED-IPC201701-000013

PATIENT
  Age: 59 Year
  Sex: Male

DRUGS (6)
  1. NATEGLINIDE. [Suspect]
     Active Substance: NATEGLINIDE
  2. TRAMADOL. [Suspect]
     Active Substance: TRAMADOL
  3. SITAGLIPTIN [Suspect]
     Active Substance: SITAGLIPTIN
  4. METFORMIN HYDROCHLORIDE. [Suspect]
     Active Substance: METFORMIN HYDROCHLORIDE
  5. LITHIUM. [Suspect]
     Active Substance: LITHIUM
  6. LISINOPRIL. [Suspect]
     Active Substance: LISINOPRIL

REACTIONS (1)
  - Hypoglycaemia [Recovered/Resolved]
